FAERS Safety Report 8924584 (Version 1)
Quarter: 2012Q4

REPORT INFORMATION
  Report Type: 
  Country: US (occurrence: US)
  Receive Date: 20121126
  Receipt Date: 20121126
  Transmission Date: 20130627
  Serious: No
  Sender: FDA-Public Use
  Company Number: US-PFIZER INC-2012293057

PATIENT
  Age: 86 Year
  Sex: Male
  Weight: 61.22 kg

DRUGS (7)
  1. ZOLOFT [Suspect]
     Indication: DEPRESSION
     Dosage: 25 mg, 1x/day
     Route: 048
     Dates: start: 2010
  2. ZOLOFT [Suspect]
     Dosage: 50 mg, 1x/day
     Route: 048
  3. LISINOPRIL [Concomitant]
     Dosage: UNK
  4. CARVEDILOL [Concomitant]
     Dosage: UNK
  5. ASPIRIN [Concomitant]
     Dosage: 325 mg, UNK
  6. HYDROCODONE [Concomitant]
     Dosage: UNK
  7. FUROSEMIDE [Concomitant]
     Dosage: UNK

REACTIONS (7)
  - Blood creatinine increased [Unknown]
  - Monocyte count increased [Unknown]
  - Mean cell volume increased [Unknown]
  - Mean cell haemoglobin increased [Unknown]
  - Respiratory tract congestion [Unknown]
  - Cough [Unknown]
  - Sputum increased [Unknown]
